FAERS Safety Report 10973281 (Version 3)
Quarter: 2015Q2

REPORT INFORMATION
  Report Type: Spontaneous
  Country: PE (occurrence: PE)
  Receive Date: 20150401
  Receipt Date: 20150407
  Transmission Date: 20150821
  Serious: No
  Sender: FDA-Public Use
  Company Number: PE-009507513-1503PER014522

PATIENT
  Age: 20 Year
  Sex: Male

DRUGS (1)
  1. NASONEX [Suspect]
     Active Substance: MOMETASONE FUROATE
     Indication: HYPERSENSITIVITY
     Dosage: UNK, BID
     Dates: start: 20150116, end: 201502

REACTIONS (1)
  - Nasal turbinate hypertrophy [Recovering/Resolving]

NARRATIVE: CASE EVENT DATE: 201502
